FAERS Safety Report 11792691 (Version 1)
Quarter: 2015Q4

REPORT INFORMATION
  Report Type: Spontaneous
  Country: US (occurrence: None)
  Receive Date: 20151130
  Receipt Date: 20151130
  Transmission Date: 20160305
  Serious: Yes (Death, Hospitalization)
  Sender: FDA-Public Use
  Company Number: 2015US-106643

PATIENT
  Age: 48 Year
  Sex: Male

DRUGS (1)
  1. METFORMIN [Suspect]
     Active Substance: METFORMIN HYDROCHLORIDE
     Indication: PRODUCT USED FOR UNKNOWN INDICATION
     Dosage: 90 DF,
     Route: 048

REACTIONS (14)
  - Acute respiratory distress syndrome [None]
  - Hypotension [None]
  - Metabolic acidosis [None]
  - Multi-organ failure [None]
  - Blood bilirubin increased [None]
  - Aspartate aminotransferase increased [None]
  - Prothrombin time prolonged [None]
  - Continuous haemodiafiltration [None]
  - Abdominal tenderness [None]
  - Ocular icterus [None]
  - Toxicity to various agents [None]
  - Intentional overdose [None]
  - Lactic acidosis [None]
  - Blood creatinine increased [None]
